FAERS Safety Report 5732820-5 (Version None)
Quarter: 2008Q2

REPORT INFORMATION
  Report Type: 
  Country: None (occurrence: None)
  Receive Date: 20080507
  Receipt Date: 20080507
  Transmission Date: 20081010
  Serious: Yes (Other)
  Sender: FDA-Public Use
  Company Number: None

PATIENT
  Sex: Male
  Weight: 22.6799 kg

DRUGS (1)
  1. ALBUTEROL [Suspect]
     Indication: ASTHMA
     Dosage: 1 VIAL EVERY 4 HOURS OTHER
     Route: 050
     Dates: start: 20080201, end: 20080212

REACTIONS (2)
  - DISTURBANCE IN ATTENTION [None]
  - TREMOR [None]
